FAERS Safety Report 5967363-7 (Version None)
Quarter: 2008Q4

REPORT INFORMATION
  Report Type: 
  Country: None (occurrence: None)
  Receive Date: 20081125
  Receipt Date: 20081012
  Transmission Date: 20090506
  Serious: No
  Sender: FDA-Public Use
  Company Number: US-AMGEN-KDL313084

PATIENT
  Sex: Female

DRUGS (2)
  1. ENBREL [Suspect]
     Indication: RHEUMATOID ARTHRITIS
     Route: 058
     Dates: start: 20080925
  2. METHOTREXATE [Concomitant]
     Route: 048
     Dates: start: 20080730

REACTIONS (5)
  - EAR PAIN [None]
  - GLOSSODYNIA [None]
  - SWOLLEN TONGUE [None]
  - TONGUE COATED [None]
  - TONGUE DISORDER [None]
